FAERS Safety Report 6402530-X (Version None)
Quarter: 2009Q4

REPORT INFORMATION
  Report Type: 
  Country: None (occurrence: None)
  Receive Date: 20091009
  Receipt Date: 20090930
  Transmission Date: 20100525
  Serious: Yes (Other)
  Sender: FDA-Public Use
  Company Number: ADR34552009

PATIENT
  Age: 69 Year
  Sex: Female

DRUGS (7)
  1. CIPROFLOXACIN [Suspect]
     Indication: URINARY TRACT INFECTION
     Dosage: 1 G, ORAL
     Route: 048
     Dates: start: 20090222, end: 20090227
  2. ADCAL-D3  (CALCIUM CARBONATE, CHOLECALCIFEROL) [Concomitant]
  3. ASPIRIN [Concomitant]
  4. BISOPROLOL [Concomitant]
  5. CANDESARTAN CILEXETIL [Concomitant]
  6. FUROSEMIDE [Concomitant]
  7. ATORVASTATIN [Concomitant]

REACTIONS (2)
  - LIVER FUNCTION TEST ABNORMAL [None]
  - MALAISE [None]
